FAERS Safety Report 24624442 (Version 1)
Quarter: 2024Q4

REPORT INFORMATION
  Report Type: Report from Study
  Country: CA (occurrence: CA)
  Receive Date: 20241115
  Receipt Date: 20241115
  Transmission Date: 20250115
  Serious: Yes (Hospitalization)
  Sender: PFIZER
  Company Number: CA-PFIZER INC-202101458160

PATIENT
  Age: 45 Year
  Sex: Female

DRUGS (16)
  1. METHOTREXATE SODIUM [Suspect]
     Active Substance: METHOTREXATE SODIUM
     Dosage: 20 MG, 1X/DAY
     Route: 048
  2. RITUXIMAB [Suspect]
     Active Substance: RITUXIMAB
     Indication: Cholangitis sclerosing
     Dosage: 1000 MG
     Route: 042
  3. RITUXIMAB [Suspect]
     Active Substance: RITUXIMAB
     Indication: Polymyositis
  4. RITUXIMAB [Suspect]
     Active Substance: RITUXIMAB
     Indication: Hepatic artery stenosis
  5. RITUXIMAB [Suspect]
     Active Substance: RITUXIMAB
     Indication: Colitis ulcerative
  6. RITUXIMAB [Suspect]
     Active Substance: RITUXIMAB
     Indication: Biliary obstruction
  7. RITUXIMAB [Suspect]
     Active Substance: RITUXIMAB
     Indication: Polymyositis
     Dosage: UNK
  8. RITUXIMAB [Suspect]
     Active Substance: RITUXIMAB
     Indication: Hepatic artery stenosis
     Dosage: UNK
  9. RITUXIMAB [Suspect]
     Active Substance: RITUXIMAB
     Indication: Colitis ulcerative
     Dosage: UNK
  10. RITUXIMAB [Suspect]
     Active Substance: RITUXIMAB
     Indication: Cholangitis sclerosing
     Dosage: 1000 MG
     Route: 042
  11. RITUXIMAB [Suspect]
     Active Substance: RITUXIMAB
     Indication: Biliary obstruction
     Dosage: UNK
  12. CODEINE [Suspect]
     Active Substance: CODEINE
     Route: 065
  13. FOLIC ACID [Suspect]
     Active Substance: FOLIC ACID
     Dosage: 5 MG, 1X/DAY
     Route: 048
  14. ACETAMINOPHEN [Concomitant]
     Active Substance: ACETAMINOPHEN
     Dosage: 650 MG
     Route: 048
  15. DIPHENHYDRAMINE [Concomitant]
     Active Substance: DIPHENHYDRAMINE
     Dosage: 50 MG
     Route: 048
  16. METHYLPREDNISOLONE [Concomitant]
     Active Substance: METHYLPREDNISOLONE
     Dosage: 100 MG
     Route: 042

REACTIONS (5)
  - Drug ineffective [Unknown]
  - Drug hypersensitivity [Unknown]
  - Off label use [Unknown]
  - Cellulitis [Unknown]
  - Product dose omission issue [Unknown]
